FAERS Safety Report 15563321 (Version 3)
Quarter: 2019Q1

REPORT INFORMATION
  Report Type: Spontaneous
  Country: FR (occurrence: FR)
  Receive Date: 20181029
  Receipt Date: 20190131
  Transmission Date: 20190417
  Serious: Yes (Other)
  Sender: FDA-Public Use
  Company Number: FR-PFIZER INC-2018434578

PATIENT
  Age: 22 Year
  Sex: Female
  Weight: 90 kg

DRUGS (11)
  1. ROVAMYCINE [Suspect]
     Active Substance: SPIRAMYCIN
     Indication: PNEUMONIA
     Dosage: 3 MILLION IU, 3X/DAY
     Route: 042
     Dates: start: 20180919, end: 20180926
  2. PANTOPRAZOLE [Suspect]
     Active Substance: PANTOPRAZOLE
     Dosage: 40 MG, QD
     Route: 042
     Dates: start: 20180919, end: 20180925
  3. SUFENTANIL [Suspect]
     Active Substance: SUFENTANIL
     Indication: ANALGESIC THERAPY
     Dosage: UNK
     Route: 041
     Dates: start: 20180919, end: 20180923
  4. ZYVOXID [Suspect]
     Active Substance: LINEZOLID
     Indication: PNEUMONIA
     Dosage: 600 MG, Q12H
     Route: 042
     Dates: start: 20180919, end: 20180925
  5. NOREPINEPHRINE BITARTRATE. [Suspect]
     Active Substance: NOREPINEPHRINE BITARTRATE
     Dosage: UNK
     Route: 041
     Dates: start: 20180919, end: 20180922
  6. UMULINE [Suspect]
     Active Substance: INSULIN HUMAN
     Dosage: UNK
     Route: 041
     Dates: start: 20180919, end: 20180921
  7. LOVENOX [Suspect]
     Active Substance: ENOXAPARIN SODIUM
     Indication: THROMBOSIS PROPHYLAXIS
     Dosage: 4000 IU, QD
     Route: 058
     Dates: start: 20180919, end: 20180928
  8. CISATRACURIUM MYLAN [Suspect]
     Active Substance: CISATRACURIUM
     Dosage: UNK
     Route: 041
     Dates: start: 20180919, end: 20180923
  9. MIDAZOLAM [Suspect]
     Active Substance: MIDAZOLAM HYDROCHLORIDE
     Dosage: UNK
     Route: 041
     Dates: start: 20180919, end: 20180921
  10. CEFOTAXIME [Suspect]
     Active Substance: CEFOTAXIME SODIUM
     Indication: PNEUMONIA
     Dosage: 1 G, 3X/DAY
     Route: 042
     Dates: start: 20180919, end: 20180928
  11. BRICANYL [Concomitant]
     Active Substance: TERBUTALINE SULFATE
     Dosage: UNK

REACTIONS (2)
  - Rash morbilliform [Recovering/Resolving]
  - Eosinophilia [Recovering/Resolving]

NARRATIVE: CASE EVENT DATE: 20180920
